FAERS Safety Report 11628762 (Version 3)
Quarter: 2020Q4

REPORT INFORMATION
  Report Type: Report from Study
  Country: US (occurrence: US)
  Receive Date: 20151014
  Receipt Date: 20201202
  Transmission Date: 20210113
  Serious: Yes (Hospitalization, Other)
  Sender: FDA-Public Use
  Company Number: US-SA-2015SA042398

PATIENT

DRUGS (25)
  1. AGALSIDASE BETA [Suspect]
     Active Substance: AGALSIDASE BETA
     Indication: FABRY^S DISEASE
     Dosage: 85 MG,QOW
     Route: 041
     Dates: start: 200406, end: 2009
  2. BENADRYL [Concomitant]
     Active Substance: DIPHENHYDRAMINE HYDROCHLORIDE
     Indication: PREMEDICATION
     Dosage: 25 MG,UNK
  3. IBUPROFEN. [Concomitant]
     Active Substance: IBUPROFEN
  4. SUCRALFATE. [Concomitant]
     Active Substance: SUCRALFATE
  5. LISINOPRIL. [Concomitant]
     Active Substance: LISINOPRIL
  6. AGALSIDASE BETA [Suspect]
     Active Substance: AGALSIDASE BETA
     Indication: VITAMIN D DEFICIENCY
     Dosage: .3 MG/KG,UNK
     Route: 041
     Dates: start: 200910, end: 201004
  7. NORMAL SALINE [Concomitant]
     Active Substance: SODIUM CHLORIDE
  8. LOSARTAN. [Concomitant]
     Active Substance: LOSARTAN
  9. TYLENOL [Concomitant]
     Active Substance: ACETAMINOPHEN
  10. CAPTOPRIL. [Concomitant]
     Active Substance: CAPTOPRIL
  11. AGALSIDASE BETA [Suspect]
     Active Substance: AGALSIDASE BETA
     Indication: OEDEMA
     Dosage: 85 MG/KG, QOW
     Route: 041
     Dates: start: 201202
  12. TEGRETOL [Concomitant]
     Active Substance: CARBAMAZEPINE
  13. BACTRIM [Concomitant]
     Active Substance: SULFAMETHOXAZOLE\TRIMETHOPRIM
  14. AGALSIDASE BETA [Suspect]
     Active Substance: AGALSIDASE BETA
     Indication: PROTEINURIA
     Dosage: .5 MG/KG,QOW
     Route: 041
     Dates: start: 2010
  15. VICODIN [Concomitant]
     Active Substance: ACETAMINOPHEN\HYDROCODONE BITARTRATE
  16. PERCOCET [OXYCODONE HYDROCHLORIDE;OXYCODONE TEREPHTHALATE;PARACETAMOL] [Concomitant]
     Active Substance: ACETAMINOPHEN\OXYCODONE HYDROCHLORIDE\OXYCODONE TEREPHTHALATE
  17. LEVOFLOXACIN. [Concomitant]
     Active Substance: LEVOFLOXACIN
  18. DIPHENHYDRAMINE. [Concomitant]
     Active Substance: DIPHENHYDRAMINE
  19. METHOCARBAMOL. [Concomitant]
     Active Substance: METHOCARBAMOL
  20. ASPIRIN [ACETYLSALICYLIC ACID] [Concomitant]
     Active Substance: ASPIRIN
  21. CARBAMAZEPINE. [Concomitant]
     Active Substance: CARBAMAZEPINE
  22. PROTONIX [OMEPRAZOLE] [Concomitant]
     Active Substance: OMEPRAZOLE
  23. SULFACETAMIDE. [Concomitant]
     Active Substance: SULFACETAMIDE
  24. EPINEPHRINE. [Concomitant]
     Active Substance: EPINEPHRINE
  25. ATIVAN [Concomitant]
     Active Substance: LORAZEPAM

REACTIONS (53)
  - Confusional state [Recovered/Resolved]
  - Pain [Recovered/Resolved]
  - Constipation [Unknown]
  - Blood pressure decreased [Unknown]
  - Paraesthesia [Recovered/Resolved]
  - Condition aggravated [Recovering/Resolving]
  - Pharyngitis [Unknown]
  - Radiculopathy [Unknown]
  - Pain in extremity [Not Recovered/Not Resolved]
  - Transient ischaemic attack [Recovered/Resolved]
  - Dizziness [Unknown]
  - Nephropathy [Unknown]
  - Viral infection [Recovered/Resolved]
  - Abdominal discomfort [Unknown]
  - Abdominal distension [Recovered/Resolved]
  - Infusion related reaction [Unknown]
  - Blood pressure increased [Recovered/Resolved]
  - Chills [Recovered/Resolved]
  - Vomiting [Recovering/Resolving]
  - Deafness unilateral [Recovered/Resolved]
  - Fabry^s disease [Recovering/Resolving]
  - Eustachian tube dysfunction [Recovering/Resolving]
  - Gastrointestinal disorder [Recovering/Resolving]
  - Flushing [Recovered/Resolved]
  - Heart rate increased [Recovered/Resolved]
  - Influenza like illness [Unknown]
  - Impaired gastric emptying [Unknown]
  - Intervertebral disc operation [Recovering/Resolving]
  - Pyrexia [Recovered/Resolved]
  - Dyspepsia [Unknown]
  - Headache [Unknown]
  - Tremor [Unknown]
  - Paraesthesia [Recovering/Resolving]
  - Nail discolouration [Recovered/Resolved]
  - Nausea [Recovered/Resolved]
  - Angiokeratoma [Unknown]
  - Heart rate decreased [Unknown]
  - Vitamin D deficiency [Unknown]
  - Left ventricular hypertrophy [Unknown]
  - Vision blurred [Recovered/Resolved]
  - Back pain [Not Recovered/Not Resolved]
  - Facial paralysis [Unknown]
  - Vomiting [Recovered/Resolved]
  - Nausea [Recovering/Resolving]
  - Chest discomfort [Recovered/Resolved]
  - Peripheral coldness [Recovered/Resolved]
  - Pyrexia [Unknown]
  - Joint injury [Unknown]
  - Hypoaesthesia [Recovered/Resolved]
  - Neuropathy peripheral [Unknown]
  - Diarrhoea [Unknown]
  - Tooth disorder [Recovered/Resolved]
  - Vomiting [Unknown]

NARRATIVE: CASE EVENT DATE: 2006
